FAERS Safety Report 5085664-4 (Version None)
Quarter: 2006Q3

REPORT INFORMATION
  Report Type: 
  Country: None (occurrence: None)
  Receive Date: 20060822
  Receipt Date: 20060406
  Transmission Date: 20061208
  Serious: Yes (Other)
  Sender: FDA-Public Use
  Company Number: US-JNJFOC-20060401743

PATIENT
  Sex: Male

DRUGS (4)
  1. CONCERTA [Suspect]
     Indication: ATTENTION DEFICIT/HYPERACTIVITY DISORDER
     Route: 048
  2. RISPERDAL [Suspect]
     Indication: DEPRESSION
  3. TRIAMINIC SRT [Interacting]
     Indication: DRUG USE FOR UNKNOWN INDICATION
  4. IMIPRAMINE [Suspect]
     Indication: DEPRESSION

REACTIONS (4)
  - AGITATION [None]
  - DRUG INTERACTION [None]
  - HEART RATE INCREASED [None]
  - SOMNOLENCE [None]
